FAERS Safety Report 4422659-5 (Version None)
Quarter: 2004Q3

REPORT INFORMATION
  Report Type: 
  Country: None (occurrence: None)
  Receive Date: 20040810
  Receipt Date: 20031211
  Transmission Date: 20050211
  Serious: Yes (Hospitalization)
  Sender: FDA-Public Use
  Company Number: US-MERCK-0312USA01210

PATIENT
  Age: 90 Year
  Sex: Female

DRUGS (6)
  1. ARICEPT [Concomitant]
     Route: 065
  2. PROZAC [Concomitant]
     Route: 065
  3. ZYPREXA [Concomitant]
     Route: 065
  4. ACTONEL [Suspect]
     Route: 048
     Dates: start: 20031001, end: 20031001
  5. ACTONEL [Suspect]
     Route: 048
     Dates: end: 20020101
  6. VIOXX [Suspect]
     Route: 048
     Dates: end: 20031001

REACTIONS (3)
  - ADVERSE EVENT [None]
  - GASTROINTESTINAL HAEMORRHAGE [None]
  - HAEMATEMESIS [None]
